FAERS Safety Report 9801959 (Version 2)
Quarter: 2014Q1

REPORT INFORMATION
  Report Type: Spontaneous
  Country: GB (occurrence: GB)
  Receive Date: 20140107
  Receipt Date: 20140131
  Transmission Date: 20141002
  Serious: Yes (Other)
  Sender: FDA-Public Use
  Company Number: PHFR2014GB000459

PATIENT
  Age: 59 Year
  Sex: Female

DRUGS (4)
  1. CLOZARIL [Suspect]
     Dosage: UNK UKN, UNK
     Route: 048
     Dates: start: 20010701
  2. CLOZARIL [Suspect]
     Dosage: 350 MG, QD
     Route: 048
  3. CLOZARIL [Suspect]
     Dosage: 275 MG, QD
     Route: 048
  4. AB [Concomitant]
     Dosage: UNK UKN, UNK

REACTIONS (5)
  - Fall [Unknown]
  - Spinal fracture [Unknown]
  - Mobility decreased [Unknown]
  - Dysstasia [Unknown]
  - Antipsychotic drug level increased [Unknown]
